FAERS Safety Report 12335647 (Version 1)
Quarter: 2016Q2

REPORT INFORMATION
  Report Type: Spontaneous
  Country: US (occurrence: US)
  Receive Date: 20160505
  Receipt Date: 20160505
  Transmission Date: 20160815
  Serious: No
  Sender: FDA-Public Use
  Company Number: US-ASTRAZENECA-2016SE45659

PATIENT
  Age: 946 Month
  Sex: Female

DRUGS (5)
  1. ATACAND [Suspect]
     Active Substance: CANDESARTAN CILEXETIL
     Indication: HYPERTENSION
     Route: 048
  2. THYROXINE [Concomitant]
     Active Substance: LEVOTHYROXINE
     Indication: THYROID DISORDER
     Route: 048
  3. ATACAND [Suspect]
     Active Substance: CANDESARTAN CILEXETIL
     Indication: HYPERTENSION
     Dosage: CANDESARTAN CILEXETIL MANUFACTURED BY SANDOZ,, 16 MG, DAILY
     Route: 048
     Dates: start: 201503, end: 201507
  4. TRIAMTERENE. [Concomitant]
     Active Substance: TRIAMTERENE
     Indication: DIURETIC THERAPY
     Dosage: DAILY
     Route: 048
  5. ATACAND [Suspect]
     Active Substance: CANDESARTAN CILEXETIL
     Indication: HYPERTENSION
     Route: 048

REACTIONS (5)
  - Dysphonia [Recovered/Resolved]
  - Thyroid disorder [Unknown]
  - Cough [Recovered/Resolved]
  - Hypertension [Unknown]
  - Adverse event [Unknown]

NARRATIVE: CASE EVENT DATE: 201507
